FAERS Safety Report 9087610 (Version 1)
Quarter: 2013Q1

REPORT INFORMATION
  Report Type: Report from Study
  Country: US (occurrence: US)
  Receive Date: 20130131
  Receipt Date: 20130131
  Transmission Date: 20140127
  Serious: No
  Sender: FDA-Public Use
  Company Number: US-ABBOTT-12P-163-0991106-00

PATIENT
  Age: 45 Year
  Sex: Male

DRUGS (2)
  1. HUMIRA [Suspect]
     Indication: CROHN^S DISEASE
     Dates: start: 20120920
  2. UNKNOWN PAIN PATCH [Concomitant]
     Indication: BACK PAIN
     Dates: start: 20120925

REACTIONS (2)
  - Drug administration error [Unknown]
  - Mental impairment [Unknown]
